FAERS Safety Report 9033959 (Version 1)
Quarter: 2013Q1

REPORT INFORMATION
  Report Type: Report from Study
  Country: JP (occurrence: JP)
  Receive Date: 20130128
  Receipt Date: 20130128
  Transmission Date: 20140127
  Serious: Yes (Death, Other)
  Sender: FDA-Public Use
  Company Number: JP-009507513-1212JPN002214

PATIENT
  Age: 85 Year
  Sex: Male
  Weight: 53 kg

DRUGS (6)
  1. TEMOZOLOMIDE [Suspect]
     Indication: GLIOBLASTOMA MULTIFORME
     Dosage: 75 MG/M2, QD
     Route: 041
     Dates: start: 20111228, end: 20120121
  2. TEMODAL [Suspect]
     Indication: GLIOBLASTOMA MULTIFORME
     Dosage: UNK
     Route: 048
     Dates: start: 20111216, end: 20111227
  3. BACTRAMIN [Concomitant]
     Indication: ANTIFUNGAL PROPHYLAXIS
     Dosage: UNK
     Route: 042
     Dates: start: 20120108, end: 20120121
  4. UNISIA [Concomitant]
     Dosage: UNK
     Route: 048
     Dates: end: 20120116
  5. SUNRYTHM [Concomitant]
     Dosage: UNK
     Route: 048
     Dates: end: 20120116
  6. PHENOBAL [Concomitant]
     Indication: PROPHYLAXIS
     Dosage: UNK
     Route: 048
     Dates: start: 20111212, end: 20120116

REACTIONS (2)
  - Disease progression [Fatal]
  - Respiratory disorder [Not Recovered/Not Resolved]
